FAERS Safety Report 23187577 (Version 1)
Quarter: 2023Q4

REPORT INFORMATION
  Report Type: Spontaneous
  Country: JP (occurrence: None)
  Receive Date: 20231115
  Receipt Date: 20231115
  Transmission Date: 20240110
  Serious: Yes (Other)
  Sender: FDA-Public Use
  Company Number: 2023A257643

PATIENT
  Age: 70 Year
  Sex: Female

DRUGS (2)
  1. OLAPARIB [Suspect]
     Active Substance: OLAPARIB
     Indication: Ovarian cancer stage III
     Route: 048
  2. NIRAPARIB [Concomitant]
     Active Substance: NIRAPARIB

REACTIONS (1)
  - Malignant neoplasm progression [Unknown]
